FAERS Safety Report 10566745 (Version 2)
Quarter: 2014Q4

REPORT INFORMATION
  Report Type: Report from Study
  Country: BR (occurrence: BR)
  Receive Date: 20141105
  Receipt Date: 20141105
  Transmission Date: 20150529
  Serious: Yes (Life-Threatening, Hospitalization, Other)
  Sender: FDA-Public Use
  Company Number: PHHY2013BR006425

PATIENT
  Age: 57 Year
  Sex: Female
  Weight: 62 kg

DRUGS (17)
  1. ONBREZ [Suspect]
     Active Substance: INDACATEROL
     Indication: PRODUCT USED FOR UNKNOWN INDICATION
     Route: 065
  2. VENLAFAXINE [Concomitant]
     Active Substance: VENLAFAXINE HYDROCHLORIDE
     Indication: DEPRESSION
     Dosage: 1 DF, DAILY
     Route: 065
     Dates: start: 2010
  3. XOLAIR [Suspect]
     Active Substance: OMALIZUMAB
     Indication: ASTHMA
     Dosage: 150 MG, QMO
     Route: 058
     Dates: start: 2012
  4. OXYGEN. [Suspect]
     Active Substance: OXYGEN
     Indication: PRODUCT USED FOR UNKNOWN INDICATION
     Dosage: UNK
     Route: 065
  5. PREDNISONE. [Suspect]
     Active Substance: PREDNISONE
     Indication: PRODUCT USED FOR UNKNOWN INDICATION
     Dosage: 3 TIMES TO TOOLS
     Route: 065
     Dates: start: 201202
  6. GABAPENTIN. [Concomitant]
     Active Substance: GABAPENTIN
     Indication: PRODUCT USED FOR UNKNOWN INDICATION
     Dosage: 3 DF, DAILY
     Route: 065
     Dates: start: 2013
  7. BROMID AMBLOCIL [Concomitant]
     Indication: LUNG DISORDER
     Dosage: UNK
     Route: 065
     Dates: start: 201310
  8. XOLAIR [Suspect]
     Active Substance: OMALIZUMAB
     Dosage: 150 MG, EACH 15 DAYS
     Route: 058
     Dates: start: 20121207
  9. HIGROTON [Suspect]
     Active Substance: CHLORTHALIDONE
     Indication: PRODUCT USED FOR UNKNOWN INDICATION
     Route: 065
  10. LANTUS [Suspect]
     Active Substance: INSULIN GLARGINE
     Indication: PRODUCT USED FOR UNKNOWN INDICATION
     Route: 065
  11. ALENIA                             /01538101/ [Concomitant]
     Active Substance: BUDESONIDE\FORMOTEROL FUMARATE
     Indication: LUNG DISORDER
     Dosage: 2 DF, DAILY
     Route: 065
     Dates: start: 2012
  12. BAMIFIX [Concomitant]
     Active Substance: BAMIFYLLINE HYDROCHLORIDE
     Indication: LUNG DISORDER
     Dosage: 1 DF, DAILY
     Dates: start: 201310
  13. PREDSIM [Concomitant]
     Active Substance: PREDNISOLONE
     Dosage: UNK
  14. D-3 [Concomitant]
     Active Substance: CHOLECALCIFEROL
     Indication: THYROID DISORDER
     Dosage: 1 DF, DAILY
     Route: 065
     Dates: start: 2010
  15. CLAVULIN [Concomitant]
     Active Substance: AMOXICILLIN\CLAVULANIC ACID
     Dosage: UNK
  16. PURAN [Concomitant]
     Active Substance: LEVOTHYROXINE SODIUM
     Indication: THYROID DISORDER
     Dosage: 1 DF, DAILY
     Route: 065
     Dates: start: 2010
  17. CLONAZEPAM. [Concomitant]
     Active Substance: CLONAZEPAM
     Indication: SLEEP DISORDER
     Dosage: 1 DF, DAILY
     Route: 065
     Dates: start: 2010

REACTIONS (12)
  - Coma [Unknown]
  - Lung disorder [Recovering/Resolving]
  - Weight increased [Recovering/Resolving]
  - Dyspnoea [Unknown]
  - Thrombosis [Unknown]
  - Cough [Unknown]
  - Bladder disorder [Unknown]
  - Speech disorder [Unknown]
  - Memory impairment [Unknown]
  - Asthenia [Recovering/Resolving]
  - Pulmonary embolism [Unknown]
  - Wound [Unknown]

NARRATIVE: CASE EVENT DATE: 20130228
